FAERS Safety Report 7492906-4 (Version None)
Quarter: 2011Q2

REPORT INFORMATION
  Report Type: 
  Country: None (occurrence: None)
  Receive Date: 20110520
  Receipt Date: 20110510
  Transmission Date: 20111010
  Serious: Yes (Hospitalization, Other)
  Sender: FDA-Public Use
  Company Number: US-BIOGENIDEC-2007BI002617

PATIENT
  Age: 61 Year
  Sex: Female
  Weight: 52 kg

DRUGS (8)
  1. FLONASE [Concomitant]
     Indication: UPPER-AIRWAY COUGH SYNDROME
  2. WELLBUTRIN [Concomitant]
     Indication: FIBROMYALGIA
  3. PRILOSEC [Concomitant]
     Indication: GASTROOESOPHAGEAL REFLUX DISEASE
  4. GABAPENTIN [Concomitant]
     Indication: FIBROMYALGIA
  5. ATROVENT [Concomitant]
     Indication: UPPER-AIRWAY COUGH SYNDROME
  6. AMANTADINE HCL [Concomitant]
     Indication: FATIGUE
  7. AVONEX [Suspect]
     Route: 030
     Dates: start: 20030101
  8. AVONEX [Suspect]
     Indication: MULTIPLE SCLEROSIS
     Route: 030
     Dates: start: 20021101, end: 20030101

REACTIONS (33)
  - PANCREATITIS [None]
  - CHOLELITHIASIS [None]
  - RENAL FAILURE CHRONIC [None]
  - FIBROMYALGIA [None]
  - DIZZINESS [None]
  - ASTHENIA [None]
  - FATIGUE [None]
  - ANAEMIA POSTOPERATIVE [None]
  - ABDOMINAL PAIN [None]
  - CHRONIC OBSTRUCTIVE PULMONARY DISEASE [None]
  - TOOTH INFECTION [None]
  - TREMOR [None]
  - FEELING COLD [None]
  - DIABETES MELLITUS [None]
  - WEIGHT DECREASED [None]
  - CYSTITIS [None]
  - GASTROENTERITIS VIRAL [None]
  - PYREXIA [None]
  - ANAEMIA [None]
  - BRONCHIECTASIS [None]
  - LUNG NEOPLASM [None]
  - BLADDER DISORDER [None]
  - PSEUDOMONAS INFECTION [None]
  - NEUROGENIC BLADDER [None]
  - PNEUMONIA [None]
  - HYPERSOMNIA [None]
  - BALANCE DISORDER [None]
  - MUSCLE SPASMS [None]
  - KLEBSIELLA INFECTION [None]
  - HYPERTENSION [None]
  - MULTIPLE SCLEROSIS [None]
  - CHILLS [None]
  - INSOMNIA [None]
